FAERS Safety Report 9886146 (Version 2)
Quarter: 2014Q1

REPORT INFORMATION
  Report Type: Spontaneous
  Country: IE (occurrence: IE)
  Receive Date: 20140210
  Receipt Date: 20140307
  Transmission Date: 20141002
  Serious: Yes (Hospitalization)
  Sender: FDA-Public Use
  Company Number: IE-PFIZER INC-2014035239

PATIENT
  Age: 38 Year
  Sex: Female
  Weight: 77 kg

DRUGS (2)
  1. DEPO-PROVERA [Suspect]
     Indication: CONTRACEPTION
     Dosage: UNK
     Route: 030
     Dates: start: 20131001, end: 20140121
  2. LEXAPRO [Concomitant]
     Indication: DEPRESSION
     Dosage: 15 MG
     Dates: start: 20131201, end: 20140121

REACTIONS (1)
  - Pulmonary embolism [Unknown]
